FAERS Safety Report 19756547 (Version 1)
Quarter: 2021Q3

REPORT INFORMATION
  Report Type: Other
  Country: US (occurrence: US)
  Receive Date: 20210827
  Receipt Date: 20210827
  Transmission Date: 20211014
  Serious: No
  Sender: FDA-Public Use
  Company Number: US-ROCHE-2892396

PATIENT
  Sex: Female
  Weight: 114.75 kg

DRUGS (4)
  1. IBUPROFEN. [Concomitant]
     Active Substance: IBUPROFEN
     Route: 048
  2. OCREVUS [Suspect]
     Active Substance: OCRELIZUMAB
     Indication: RELAPSING MULTIPLE SCLEROSIS
     Dosage: DATES OF TREATMENT: 20/AUG/2019, 04/SEP/2019, 22/APR/2020
     Route: 065
  3. CIPROFLOXACIN. [Concomitant]
     Active Substance: CIPROFLOXACIN
     Route: 048
  4. OXYCODONE AND ACETAMINOPHEN [Concomitant]
     Active Substance: ACETAMINOPHEN\OXYCODONE HYDROCHLORIDE
     Dosage: 5 MG ? 325 MG
     Route: 048

REACTIONS (5)
  - Malaise [Unknown]
  - SARS-CoV-2 test positive [Unknown]
  - Feeling abnormal [Unknown]
  - Blood pressure increased [Unknown]
  - Maternal exposure timing unspecified [Unknown]
